FAERS Safety Report 7737770-0 (Version None)
Quarter: 2011Q3

REPORT INFORMATION
  Report Type: 
  Country: None (occurrence: None)
  Receive Date: 20110908
  Receipt Date: 20110827
  Transmission Date: 20111222
  Serious: No
  Sender: FDA-Public Use
  Company Number: US-B.I. PHARMACEUTICALS,INC./RIDGEFIELD-2011-BP-20945BP

PATIENT
  Sex: Female

DRUGS (2)
  1. PREVACID [Concomitant]
     Indication: GASTRITIS
     Dates: start: 20110826
  2. ZANTAC 150 [Suspect]
     Indication: GASTRITIS
     Dosage: 150 MG
     Route: 048
     Dates: start: 20110817, end: 20110826

REACTIONS (3)
  - ABDOMINAL PAIN UPPER [None]
  - CHEST DISCOMFORT [None]
  - DYSPNOEA [None]
